FAERS Safety Report 7570742-8 (Version None)
Quarter: 2011Q2

REPORT INFORMATION
  Report Type: 
  Country: None (occurrence: None)
  Receive Date: 20110624
  Receipt Date: 20110613
  Transmission Date: 20111010
  Serious: Yes (Other)
  Sender: FDA-Public Use
  Company Number: US-ELI_LILLY_AND_COMPANY-US201106001397

PATIENT
  Sex: Male

DRUGS (2)
  1. CIALIS [Suspect]
     Indication: ERECTILE DYSFUNCTION
     Dosage: 10 MG, UNK
     Dates: start: 20101224
  2. CIALIS [Suspect]
     Dosage: 20 MG, UNK

REACTIONS (4)
  - RESPIRATORY DISORDER [None]
  - DRUG INEFFECTIVE [None]
  - SINUS CONGESTION [None]
  - RHINORRHOEA [None]
